FAERS Safety Report 22648278 (Version 1)
Quarter: 2023Q2

REPORT INFORMATION
  Report Type: Spontaneous
  Country: US (occurrence: US)
  Receive Date: 20230628
  Receipt Date: 20230628
  Transmission Date: 20230722
  Serious: No
  Sender: FDA-Public Use
  Company Number: US-CADILA HEALTHCARE LIMITED-US-ZYDUS-091911

PATIENT

DRUGS (1)
  1. BOSENTAN [Suspect]
     Active Substance: BOSENTAN
     Indication: Pulmonary arterial hypertension
     Dosage: , BID
     Route: 048
     Dates: start: 20190611

REACTIONS (6)
  - Abdominal pain upper [Unknown]
  - Constipation [Unknown]
  - Dyspnoea exertional [Unknown]
  - Fatigue [Unknown]
  - Chest pain [Unknown]
  - Palpitations [Unknown]
